FAERS Safety Report 11882326 (Version 2)
Quarter: 2016Q1

REPORT INFORMATION
  Report Type: Report from Study
  Country: JP (occurrence: JP)
  Receive Date: 20151231
  Receipt Date: 20160208
  Transmission Date: 20160526
  Serious: Yes (Other)
  Sender: FDA-Public Use
  Company Number: JP-FERRINGPH-2015FE04954

PATIENT

DRUGS (7)
  1. DENOTAS [Concomitant]
     Active Substance: CALCIUM CARBONATE\CHOLECALCIFEROL\MAGNESIUM CARBONATE
     Dosage: UNK
     Dates: start: 20141212
  2. DEGARELIX [Suspect]
     Active Substance: DEGARELIX
     Dosage: 80 MG, MONTHLY
     Route: 058
     Dates: start: 20141017, end: 20150403
  3. PRALIA [Concomitant]
     Active Substance: DENOSUMAB
     Dosage: UNK
     Dates: start: 20141212
  4. CASODEX [Concomitant]
     Active Substance: BICALUTAMIDE
     Dosage: UNK
     Route: 048
     Dates: start: 20140919
  5. AIMIX [Concomitant]
     Active Substance: AMLODIPINE BESYLATE\IRBESARTAN
     Dosage: UNK
     Dates: start: 20141212, end: 20150807
  6. DEGARELIX [Suspect]
     Active Substance: DEGARELIX
     Indication: PROSTATE CANCER
     Dosage: 240 MG, ONCE/SINGLE
     Route: 058
     Dates: start: 20140919, end: 20140919
  7. DEGARELIX [Suspect]
     Active Substance: DEGARELIX
     Dosage: 80 MG, MONTHLY
     Route: 058
     Dates: start: 20150612

REACTIONS (2)
  - Bone pain [Recovering/Resolving]
  - Hyperkalaemia [Recovered/Resolved]

NARRATIVE: CASE EVENT DATE: 20150501
